FAERS Safety Report 21800401 (Version 5)
Quarter: 2023Q1

REPORT INFORMATION
  Report Type: Report from Study
  Country: BE (occurrence: BE)
  Receive Date: 20221230
  Receipt Date: 20230228
  Transmission Date: 20230418
  Serious: Yes (Hospitalization)
  Sender: FDA-Public Use
  Company Number: BE-JNJFOC-20221260981

PATIENT
  Age: 65 Year
  Sex: Male
  Weight: 88.8 kg

DRUGS (40)
  1. AMIVANTAMAB [Suspect]
     Active Substance: AMIVANTAMAB
     Indication: Non-small cell lung cancer metastatic
     Dosage: DOSE 350 (UNITS NOT SPECIFIED) ON 14-SEP-2022 (C1D1)
     Route: 042
     Dates: start: 20220914, end: 20221221
  2. AMIVANTAMAB [Suspect]
     Active Substance: AMIVANTAMAB
     Dosage: DOSE 1400 (UNITS NOT SPECIFIED) ON 15-SEP-2022 (C1D2)
     Route: 042
     Dates: start: 20220915
  3. AMIVANTAMAB [Suspect]
     Active Substance: AMIVANTAMAB
     Dosage: DOSE 1750 (UNITS NOT SPECIFIED) ON 22-SEP-2022 (C1D8)
     Route: 042
     Dates: start: 20220922
  4. AMIVANTAMAB [Suspect]
     Active Substance: AMIVANTAMAB
     Dosage: DOSE 1750 (UNITS NOT SPECIFIED) ON 12-OCT-2022 (C2D1)
     Route: 042
     Dates: start: 20221012
  5. AMIVANTAMAB [Suspect]
     Active Substance: AMIVANTAMAB
     Dosage: C3D1
     Route: 042
     Dates: start: 20221102
  6. AMIVANTAMAB [Suspect]
     Active Substance: AMIVANTAMAB
     Dosage: C4D1
     Route: 042
     Dates: start: 20221201
  7. AMIVANTAMAB [Suspect]
     Active Substance: AMIVANTAMAB
     Dosage: C5D1
     Route: 042
     Dates: start: 20221221
  8. CARBOPLATIN [Concomitant]
     Active Substance: CARBOPLATIN
     Indication: Non-small cell lung cancer metastatic
     Dosage: DOSE 5 AUC ON 14-SEP-2022 (C1D1), DOSE 4 AUC ON 12-OCT-2022 (C2D1) AND 02-NOV-2022 (C3D1), AND AT D
     Route: 042
     Dates: start: 20220914, end: 20221201
  9. PEMETREXED [Concomitant]
     Active Substance: PEMETREXED
     Indication: Non-small cell lung cancer metastatic
     Dosage: 500 MG/M2 ON 14-SEP-2022 (C1D1)
     Route: 042
     Dates: start: 20220914, end: 20220914
  10. PEMETREXED [Concomitant]
     Active Substance: PEMETREXED
     Dosage: 375 MG/M2 ON 12-OCT-2022 (C2D1) AND 02-NOV-2022 (C3D1)
     Route: 042
     Dates: start: 20221012, end: 20221102
  11. PEMETREXED [Concomitant]
     Active Substance: PEMETREXED
     Dosage: 400 MG/M2 ON 01-DEC-2022 (C4D1) (ALSO REPORTED AS 400 MG)
     Route: 042
     Dates: start: 20221201, end: 20221201
  12. PEMETREXED [Concomitant]
     Active Substance: PEMETREXED
     Dosage: AND 500 MG/M2 ON 21-DEC-2022 (C5D1)
     Route: 042
     Dates: start: 20221221, end: 20221221
  13. NEBIVOLOL [Concomitant]
     Active Substance: NEBIVOLOL
     Indication: Hypertension
     Route: 048
     Dates: start: 20170101, end: 20221221
  14. POLYETHYLENE GLYCOLS [Concomitant]
     Active Substance: POLYETHYLENE GLYCOLS
     Indication: Eructation
     Route: 048
     Dates: start: 20191201
  15. ACETAMINOPHEN [Concomitant]
     Active Substance: ACETAMINOPHEN
     Indication: Myalgia
     Route: 048
     Dates: start: 20220914
  16. ZOLPIDEM [Concomitant]
     Active Substance: ZOLPIDEM TARTRATE
     Indication: Fatigue
     Route: 048
     Dates: start: 20220921
  17. METRONIDAZOLE [Concomitant]
     Active Substance: METRONIDAZOLE
     Indication: Perioral dermatitis
     Route: 061
     Dates: start: 20220921, end: 20221227
  18. TETRACYCLINE [Concomitant]
     Active Substance: TETRACYCLINE
     Indication: Perioral dermatitis
     Route: 048
     Dates: start: 20220921, end: 20221228
  19. TETRACYCLINE [Concomitant]
     Active Substance: TETRACYCLINE
     Indication: Dermatitis
  20. KAMILLOSAN [MATRICARIA CHAMOMILLA EXTRACT] [Concomitant]
     Indication: Stomatitis
     Dosage: REPORTED AS /KAMILLOSAN 10ML CORSODYL 40ML BICARBONATE SODIQUE MOLAIRE 100ML (BRAUN) NYSTATINE SUSPE
     Route: 050
     Dates: start: 20220926
  21. CLOBETASOL [Concomitant]
     Active Substance: CLOBETASOL
     Indication: Folliculitis
     Dosage: DOSE: 1 (DOSAGE UNIT NOT PROVIDED)
     Route: 061
     Dates: start: 20221013
  22. CLOBETASOL [Concomitant]
     Active Substance: CLOBETASOL
     Indication: Dermatitis
  23. SWEET ALMOND OIL [Concomitant]
     Active Substance: ALMOND OIL
     Indication: Eructation
     Dosage: DOSE: 1 (DOSAGE UNIT NOT PROVIDED)
     Route: 061
     Dates: start: 20221013
  24. LOPERAMIDE [Concomitant]
     Active Substance: LOPERAMIDE
     Indication: Diarrhoea
     Route: 048
     Dates: start: 20221013
  25. BETAMETHASONE [Concomitant]
     Active Substance: BETAMETHASONE
     Indication: Eructation
     Dosage: DOSE: 1 (DOSAGE UNIT NOT PROVIDED)
     Route: 061
     Dates: start: 20221102
  26. PANTOPRAZOLE [Concomitant]
     Active Substance: PANTOPRAZOLE
     Indication: Anaemia
     Route: 048
     Dates: start: 20221123
  27. CETIRIZINE HYDROCHLORIDE [Concomitant]
     Active Substance: CETIRIZINE HYDROCHLORIDE
     Indication: Pruritus
     Route: 048
     Dates: start: 20221123
  28. OXYMETAZOLINE [Concomitant]
     Active Substance: OXYMETAZOLINE
     Indication: Vasomotor rhinitis
     Route: 045
     Dates: start: 20221208
  29. DOMPERIDONE [Concomitant]
     Active Substance: DOMPERIDONE
     Indication: Nausea
     Route: 048
     Dates: start: 20221223
  30. DOMPERIDONE [Concomitant]
     Active Substance: DOMPERIDONE
     Indication: Vomiting
  31. ALIZAPRIDE [Concomitant]
     Active Substance: ALIZAPRIDE
     Indication: Nausea
     Route: 042
     Dates: start: 20221226, end: 20221226
  32. ALIZAPRIDE [Concomitant]
     Active Substance: ALIZAPRIDE
     Indication: Vomiting
  33. POTASSIUM CHLORIDE [Concomitant]
     Active Substance: POTASSIUM CHLORIDE
     Indication: Prophylaxis
     Route: 042
     Dates: start: 20221226, end: 20221226
  34. SODIUM CHLORIDE [Concomitant]
     Active Substance: SODIUM CHLORIDE
     Indication: Prophylaxis
     Route: 042
     Dates: start: 20221226, end: 20221226
  35. MAGNESIUM SULFATE [Concomitant]
     Active Substance: MAGNESIUM SULFATE
     Indication: Prophylaxis
     Route: 042
     Dates: start: 20221226, end: 20221226
  36. ELECTROLYTES NOS [Concomitant]
     Active Substance: ELECTROLYTES NOS
     Indication: Prophylaxis
     Dosage: REPORTED AS PLASYMALYTE AND GLUCOSE SOLUTION
     Route: 042
     Dates: start: 20221226, end: 20221226
  37. CHLORHEXIDINE [Concomitant]
     Active Substance: CHLORHEXIDINE
     Indication: Dermatitis
     Route: 061
     Dates: start: 20221216
  38. CICAPLAST [Concomitant]
     Indication: Dermatitis
     Dosage: DOSE 1 (UNIT NOT SPECIFIED)
     Route: 061
     Dates: start: 20221216
  39. DIFLUCORTOLONE VALERATE [Concomitant]
     Active Substance: DIFLUCORTOLONE VALERATE
     Indication: Dermatitis
     Dosage: DOSE 1 (UNIT NOT SPECIFIED); REPORTED AS DIFLUCORTOLONE VALERATE 0.3% VASELINE
     Route: 061
     Dates: start: 20221216, end: 20221223
  40. DIFLUCORTOLONE VALERATE [Concomitant]
     Active Substance: DIFLUCORTOLONE VALERATE
     Dosage: DOSE 1 (UNIT NOT SPECIFIED); REPORTED AS DIFLUCORTOLONE VALERATE 0.3% VASELINE
     Route: 061
     Dates: start: 20221223

REACTIONS (1)
  - General physical health deterioration [Recovered/Resolved]

NARRATIVE: CASE EVENT DATE: 20221228
